FAERS Safety Report 23042664 (Version 2)
Quarter: 2023Q4

REPORT INFORMATION
  Report Type: Report from Study
  Country: DE (occurrence: DE)
  Receive Date: 20231009
  Receipt Date: 20231027
  Transmission Date: 20240110
  Serious: Yes (Other)
  Sender: FDA-Public Use
  Company Number: DE-Merck Healthcare KGaA-2023477484

PATIENT
  Age: 50 Year
  Sex: Female

DRUGS (2)
  1. REBIF [Suspect]
     Active Substance: INTERFERON BETA-1A
     Indication: Multiple sclerosis
     Dosage: THERAPY START DATE: 3 WEEKS AGO (AS OF 26-SEP-2023)
     Route: 058
     Dates: start: 202309
  2. REBIF [Suspect]
     Active Substance: INTERFERON BETA-1A

REACTIONS (6)
  - Angioedema [Recovering/Resolving]
  - Balance disorder [Not Recovered/Not Resolved]
  - Influenza like illness [Unknown]
  - Muscular weakness [Unknown]
  - Tremor [Unknown]
  - Chest discomfort [Unknown]

NARRATIVE: CASE EVENT DATE: 20230925
